FAERS Safety Report 20755263 (Version 1)
Quarter: 2022Q2

REPORT INFORMATION
  Report Type: Spontaneous
  Country: US (occurrence: US)
  Receive Date: 20220427
  Receipt Date: 20220427
  Transmission Date: 20220720
  Serious: No
  Sender: FDA-Public Use
  Company Number: US-AMGEN-USASP2022068750

PATIENT
  Age: 73 Year
  Sex: Male

DRUGS (1)
  1. ENBREL [Suspect]
     Active Substance: ETANERCEPT
     Indication: Polymyalgia rheumatica
     Dosage: 50 MILLIGRAM, QWK
     Route: 058
     Dates: start: 20211002

REACTIONS (2)
  - Dental operation [Unknown]
  - Off label use [Unknown]

NARRATIVE: CASE EVENT DATE: 20211002
